FAERS Safety Report 18164802 (Version 1)
Quarter: 2020Q3

REPORT INFORMATION
  Report Type: Spontaneous
  Country: KR (occurrence: KR)
  Receive Date: 20200818
  Receipt Date: 20200818
  Transmission Date: 20201103
  Serious: Yes (Death)
  Sender: FDA-Public Use
  Company Number: KR-EISAI MEDICAL RESEARCH-EC-2020-078970

PATIENT
  Age: 50 Year
  Sex: Male

DRUGS (1)
  1. LENVIMA [Suspect]
     Active Substance: LENVATINIB
     Indication: HEPATIC CANCER
     Route: 048
     Dates: start: 202005, end: 20200607

REACTIONS (3)
  - Pruritus [Fatal]
  - Vomiting [Fatal]
  - Stupor [Fatal]

NARRATIVE: CASE EVENT DATE: 2020
